FAERS Safety Report 22185420 (Version 1)
Quarter: 2023Q2

REPORT INFORMATION
  Report Type: Spontaneous
  Country: US (occurrence: US)
  Receive Date: 20230407
  Receipt Date: 20230407
  Transmission Date: 20230721
  Serious: Yes (Other)
  Sender: FDA-Public Use
  Company Number: US-MLMSERVICE-20230306-4144116-1

PATIENT

DRUGS (19)
  1. BUPROPION [Suspect]
     Active Substance: BUPROPION
     Indication: Bipolar II disorder
     Dosage: UNK
     Route: 065
  2. BUPROPION [Suspect]
     Active Substance: BUPROPION
     Indication: Bipolar disorder
     Dosage: 450 MILLIGRAM, QD
     Route: 065
  3. BUPROPION [Suspect]
     Active Substance: BUPROPION
     Indication: Mood swings
     Dosage: UNK, TAPERED
     Route: 065
  4. GABAPENTIN [Suspect]
     Active Substance: GABAPENTIN
     Indication: Bipolar II disorder
     Dosage: 3200 MILLIGRAM, QD
     Route: 065
  5. GABAPENTIN [Suspect]
     Active Substance: GABAPENTIN
     Indication: Bipolar disorder
  6. GABAPENTIN [Suspect]
     Active Substance: GABAPENTIN
     Indication: Mood swings
  7. LAMOTRIGINE [Suspect]
     Active Substance: LAMOTRIGINE
     Indication: Bipolar II disorder
     Dosage: 300 MILLIGRAM, QD (NIGHTLY)
     Route: 065
     Dates: start: 2015
  8. LAMOTRIGINE [Suspect]
     Active Substance: LAMOTRIGINE
     Indication: Bipolar disorder
     Dosage: 325 MILLIGRAM, QD (325 MG/DAY)
     Route: 065
  9. LAMOTRIGINE [Suspect]
     Active Substance: LAMOTRIGINE
     Indication: Mood swings
     Dosage: 75 MILLIGRAM, QD (RESTARTED AT 75 MG/DAY)
     Route: 065
  10. LAMOTRIGINE [Suspect]
     Active Substance: LAMOTRIGINE
     Dosage: 35 MILLIGRAM, QD (35 MG/ DAY, FOR 2 YEARS)
     Route: 065
  11. DULOXETINE [Suspect]
     Active Substance: DULOXETINE
     Indication: Bipolar II disorder
     Dosage: UNK
     Route: 065
  12. DULOXETINE [Suspect]
     Active Substance: DULOXETINE
     Indication: Mood swings
     Dosage: 120 MILLIGRAM, QD
     Route: 065
  13. DULOXETINE [Suspect]
     Active Substance: DULOXETINE
     Indication: Bipolar disorder
  14. TRAZODONE [Suspect]
     Active Substance: TRAZODONE HYDROCHLORIDE
     Indication: Bipolar disorder
     Dosage: 50 MILLIGRAM, PRN (AT BEDTIME)
     Route: 065
  15. TRAZODONE [Suspect]
     Active Substance: TRAZODONE HYDROCHLORIDE
     Indication: Mood swings
  16. TRAZODONE [Suspect]
     Active Substance: TRAZODONE HYDROCHLORIDE
     Indication: Bipolar II disorder
  17. ARIPIPRAZOLE [Suspect]
     Active Substance: ARIPIPRAZOLE
     Indication: Bipolar disorder
     Dosage: UNK
     Route: 065
  18. ARIPIPRAZOLE [Suspect]
     Active Substance: ARIPIPRAZOLE
     Indication: Mood swings
  19. ARIPIPRAZOLE [Suspect]
     Active Substance: ARIPIPRAZOLE
     Indication: Bipolar II disorder

REACTIONS (2)
  - Drug ineffective [Unknown]
  - Chorea [Recovered/Resolved]
